FAERS Safety Report 23641682 (Version 2)
Quarter: 2024Q1

REPORT INFORMATION
  Report Type: Spontaneous
  Country: CO (occurrence: CO)
  Receive Date: 20240318
  Receipt Date: 20240327
  Transmission Date: 20240410
  Serious: Yes (Hospitalization, Other)
  Sender: FDA-Public Use
  Company Number: CO-ALKEM LABORATORIES LIMITED-CO-ALKEM-2024-04535

PATIENT
  Age: 53 Year
  Sex: Female

DRUGS (3)
  1. METHADONE HYDROCHLORIDE [Suspect]
     Active Substance: METHADONE HYDROCHLORIDE
     Indication: Back pain
     Dosage: 10 MILLIGRAM, TID (EVERY 8 HOURS)
     Route: 048
  2. OXYCODONE HYDROCHLORIDE [Suspect]
     Active Substance: OXYCODONE HYDROCHLORIDE
     Indication: Back pain
     Dosage: 20 MILLIGRAM, TID (TABLET, 3 TIME A DAY)
     Route: 065
  3. ACETAMINOPHEN [Concomitant]
     Active Substance: ACETAMINOPHEN
     Indication: Back pain
     Dosage: 500 MILLIGRAM, QID
     Route: 042

REACTIONS (6)
  - Brain oedema [Recovered/Resolved]
  - Anxiety [Recovering/Resolving]
  - Irritability [Recovering/Resolving]
  - Myalgia [Recovering/Resolving]
  - Restlessness [Recovering/Resolving]
  - Withdrawal syndrome [Recovering/Resolving]
